FAERS Safety Report 12693772 (Version 2)
Quarter: 2016Q3

REPORT INFORMATION
  Report Type: Spontaneous
  Country: US (occurrence: US)
  Receive Date: 20160829
  Receipt Date: 20160908
  Transmission Date: 20161109
  Serious: No
  Sender: FDA-Public Use
  Company Number: US-PFIZER INC-2016381956

PATIENT
  Age: 44 Year
  Sex: Female

DRUGS (5)
  1. CIPRO [Suspect]
     Active Substance: CIPROFLOXACIN HYDROCHLORIDE
     Dosage: UNK
  2. PAMELOR [Suspect]
     Active Substance: NORTRIPTYLINE HYDROCHLORIDE
     Dosage: UNK
  3. PROPANOLOL HCL [Suspect]
     Active Substance: PROPRANOLOL HYDROCHLORIDE
     Dosage: UNK
  4. ELAVIL [Suspect]
     Active Substance: AMITRIPTYLINE HYDROCHLORIDE
     Dosage: UNK
  5. OMNIPAQUE [Suspect]
     Active Substance: IOHEXOL
     Dosage: UNK

REACTIONS (2)
  - Tachycardia [Unknown]
  - Drug hypersensitivity [Not Recovered/Not Resolved]
